FAERS Safety Report 5402314-5 (Version None)
Quarter: 2007Q3

REPORT INFORMATION
  Report Type: 
  Country: None (occurrence: None)
  Receive Date: 20070730
  Receipt Date: 20070730
  Transmission Date: 20080115
  Serious: Yes (Hospitalization)
  Sender: FDA-Public Use
  Company Number: None

PATIENT
  Age: 15 Year
  Sex: Male
  Weight: 50 kg

DRUGS (6)
  1. CISAPRIDE [Suspect]
     Indication: GASTROOESOPHAGEAL REFLUX DISEASE
     Dosage: 7MG, QID, PO
     Route: 048
  2. DIGOXIN [Concomitant]
  3. FLONASE [Concomitant]
  4. MULTIVITAMINS/VIT C. [Concomitant]
  5. ASPIRIN [Concomitant]
  6. ATIVAN [Concomitant]

REACTIONS (2)
  - CATHETER RELATED COMPLICATION [None]
  - JUGULAR VEIN THROMBOSIS [None]
